FAERS Safety Report 8369935-1 (Version None)
Quarter: 2012Q2

REPORT INFORMATION
  Report Type: 
  Country: None (occurrence: None)
  Receive Date: 20120518
  Receipt Date: 20120514
  Transmission Date: 20120825
  Serious: No
  Sender: FDA-Public Use
  Company Number: US-PFIZER INC-2012117320

PATIENT
  Sex: Male
  Weight: 104.31 kg

DRUGS (2)
  1. CISPLATIN [Suspect]
     Indication: THYMOMA
     Dosage: UNK
     Route: 042
     Dates: start: 20120404
  2. ERBITUX [Concomitant]
     Dosage: UNK

REACTIONS (3)
  - OROPHARYNGEAL PAIN [None]
  - ORAL PAIN [None]
  - MUCOSAL INFLAMMATION [None]
